FAERS Safety Report 7455054-5 (Version None)
Quarter: 2011Q2

REPORT INFORMATION
  Report Type: 
  Country: None (occurrence: None)
  Receive Date: 20110503
  Receipt Date: 20110418
  Transmission Date: 20111010
  Serious: Yes (Hospitalization)
  Sender: FDA-Public Use
  Company Number: AT-CELGENEUS-009-C5013-11042193

PATIENT
  Sex: Male
  Weight: 60 kg

DRUGS (4)
  1. CC-5013\PLACEBO [Suspect]
     Indication: PROSTATE CANCER
     Dosage: 25 MILLIGRAM
     Route: 048
     Dates: start: 20110411, end: 20110416
  2. ASPIRIN [Suspect]
     Indication: THROMBOSIS PROPHYLAXIS
     Dosage: 100 MILLIGRAM
     Route: 048
     Dates: start: 20110331, end: 20110416
  3. PREDNISONE [Suspect]
     Indication: PROSTATE CANCER
     Dosage: 10 MILLIGRAM
     Dates: start: 20110411, end: 20110416
  4. DOCETAXEL [Suspect]
     Indication: PROSTATE CANCER
     Dosage: 125 MILLIGRAM
     Route: 065
     Dates: start: 20110411, end: 20110411

REACTIONS (3)
  - LEUKOPENIA [None]
  - DIARRHOEA HAEMORRHAGIC [None]
  - PYREXIA [None]
